FAERS Safety Report 7390534-2 (Version None)
Quarter: 2011Q2

REPORT INFORMATION
  Report Type: 
  Country: None (occurrence: None)
  Receive Date: 20110403
  Receipt Date: 20091013
  Transmission Date: 20111010
  Serious: Yes (Other)
  Sender: FDA-Public Use
  Company Number: PHHY2009DE67395

PATIENT
  Sex: Male

DRUGS (1)
  1. EXTAVIA [Suspect]
     Route: 058
     Dates: start: 20090716

REACTIONS (6)
  - INJECTION SITE ERYTHEMA [None]
  - MULTIPLE SCLEROSIS RELAPSE [None]
  - INJECTION SITE IRRITATION [None]
  - INJECTION SITE INDURATION [None]
  - GAIT DISTURBANCE [None]
  - SPINAL FRACTURE [None]
